FAERS Safety Report 19474509 (Version 5)
Quarter: 2022Q1

REPORT INFORMATION
  Report Type: Report from Study
  Country: JP (occurrence: JP)
  Receive Date: 20210630
  Receipt Date: 20220217
  Transmission Date: 20220423
  Serious: Yes (Death, Other)
  Sender: FDA-Public Use
  Company Number: JP-SAKK-2020SA270152AA

PATIENT
  Age: 85 Year
  Sex: Female
  Weight: 54.8 kg

DRUGS (3)
  1. ISATUXIMAB [Suspect]
     Active Substance: ISATUXIMAB
     Indication: Plasma cell myeloma
     Dosage: 10 MG/KG, 1X
     Route: 041
     Dates: start: 20200914, end: 20200914
  2. DEXAMETHASONE [Concomitant]
     Active Substance: DEXAMETHASONE
     Indication: Plasma cell myeloma
     Dosage: 4/DAY
     Route: 065
     Dates: start: 20200914
  3. POMALIDOMIDE [Concomitant]
     Active Substance: POMALIDOMIDE
     Indication: Plasma cell myeloma
     Dosage: 2/DAY
     Route: 065
     Dates: start: 20200914, end: 20200914

REACTIONS (2)
  - Subarachnoid haemorrhage [Fatal]
  - Delirium [Recovered/Resolved]

NARRATIVE: CASE EVENT DATE: 20201214
